FAERS Safety Report 8268277-2 (Version None)
Quarter: 2012Q2

REPORT INFORMATION
  Report Type: 
  Country: None (occurrence: None)
  Receive Date: 20120409
  Receipt Date: 20120403
  Transmission Date: 20120825
  Serious: Yes (Hospitalization)
  Sender: FDA-Public Use
  Company Number: PHHO2012NL005258

PATIENT
  Sex: Female
  Weight: 69 kg

DRUGS (9)
  1. DEXAMETHASONE [Concomitant]
     Indication: HYPERSENSITIVITY
     Dosage: 8 MG, UNK
     Route: 042
     Dates: start: 20110624, end: 20110624
  2. CLEMASTINE FUMARATE [Concomitant]
     Indication: HYPERSENSITIVITY
     Dosage: 2 MG, UNK
     Route: 042
     Dates: start: 20110624, end: 20110624
  3. ATACAND [Concomitant]
     Indication: HYPERTENSION
     Dosage: 8 MG, UNK
     Route: 048
     Dates: start: 20060101
  4. NO TREATMENT RECEIVED [Suspect]
     Indication: BREAST CANCER
     Dosage: NO TREATMENT
  5. DOCETAXEL [Suspect]
     Indication: BREAST CANCER
     Dosage: 140 MG, UNK
     Route: 042
     Dates: start: 20110421, end: 20110624
  6. CAPECITABINE [Suspect]
     Indication: BREAST CANCER
     Dosage: 1000 MG, UNK
     Route: 048
     Dates: start: 20110421, end: 20110624
  7. OMEPRAZOLE [Concomitant]
     Indication: ABDOMINAL DISCOMFORT
     Dosage: 40 MG, UNK
     Route: 048
     Dates: start: 20110430, end: 20110825
  8. TRIAMTERENE AND HYDROCHLOROTHIAZIDE [Concomitant]
     Indication: DYSPEPSIA
  9. TRIAMTERENE AND HYDROCHLOROTHIAZIDE [Concomitant]
     Indication: HYPERTENSION
     Dosage: 25/50
     Route: 048
     Dates: start: 20060101

REACTIONS (1)
  - CIRCULATORY COLLAPSE [None]
